FAERS Safety Report 9491040 (Version 2)
Quarter: 2013Q3

REPORT INFORMATION
  Report Type: Spontaneous
  Country: US (occurrence: US)
  Receive Date: 20130830
  Receipt Date: 20130927
  Transmission Date: 20140515
  Serious: Yes (Hospitalization, Other)
  Sender: FDA-Public Use
  Company Number: US-ASTRAZENECA-2013SE65492

PATIENT
  Age: 70 Year
  Sex: Female
  Weight: 68.9 kg

DRUGS (2)
  1. SYMBICORT [Suspect]
     Indication: CHRONIC OBSTRUCTIVE PULMONARY DISEASE
     Dosage: 160 MCG /4.5 MCG, 2 PUFFS BID
     Route: 055
     Dates: start: 2007
  2. ANTIBIOTIC FOR BACTERIA IN ELBOW [Concomitant]
     Indication: ARTHRITIS INFECTIVE

REACTIONS (9)
  - Lung infection [Unknown]
  - Thrombosis [Unknown]
  - Arthritis infective [Unknown]
  - Dysgeusia [Unknown]
  - Weight decreased [Unknown]
  - Fungal infection [Unknown]
  - Oral fungal infection [Unknown]
  - Incorrect product storage [Unknown]
  - Intentional drug misuse [Unknown]
